FAERS Safety Report 6037710-9 (Version None)
Quarter: 2009Q1

REPORT INFORMATION
  Report Type: 
  Country: None (occurrence: None)
  Receive Date: 20090113
  Receipt Date: 20090106
  Transmission Date: 20090719
  Serious: Yes (Hospitalization)
  Sender: FDA-Public Use
  Company Number: MEDI-0007714

PATIENT
  Age: 2 Month
  Sex: Male

DRUGS (1)
  1. SYNAGIS [Suspect]
     Dosage: 64 MG
     Dates: start: 20081215, end: 20081215

REACTIONS (4)
  - HYPERSENSITIVITY [None]
  - INFECTION [None]
  - NASAL CONGESTION [None]
  - OEDEMA PERIPHERAL [None]
